FAERS Safety Report 5085284-1 (Version None)
Quarter: 2006Q3

REPORT INFORMATION
  Report Type: 
  Country: None (occurrence: None)
  Receive Date: 20060817
  Receipt Date: 20060803
  Transmission Date: 20061208
  Serious: Yes (Hospitalization)
  Sender: FDA-Public Use
  Company Number: 2005094394

PATIENT
  Sex: Male

DRUGS (5)
  1. BEXTRA [Suspect]
     Indication: PAIN
     Dosage: 20 MG (20 MG, 1 IN 1 D);
     Dates: start: 20021123
  2. ALEVE [Concomitant]
  3. ASPIRIN [Concomitant]
  4. TYLENOL W/ CODEINE [Concomitant]
  5. PERCOCET [Concomitant]

REACTIONS (3)
  - CEREBROVASCULAR ACCIDENT [None]
  - EMBOLISM [None]
  - TRANSIENT ISCHAEMIC ATTACK [None]
